FAERS Safety Report 15097584 (Version 1)
Quarter: 2018Q2

REPORT INFORMATION
  Report Type: Spontaneous
  Country: US (occurrence: US)
  Receive Date: 20180610
  Receipt Date: 20180610
  Transmission Date: 20180711
  Serious: Yes (Other)
  Sender: FDA-Public Use
  Company Number: None

PATIENT
  Age: 50 Year
  Sex: Female
  Weight: 57.6 kg

DRUGS (5)
  1. PREMARIN [Concomitant]
     Active Substance: ESTROGENS, CONJUGATED
  2. CLARITAIN [Concomitant]
  3. BACLOFEN. [Concomitant]
     Active Substance: BACLOFEN
  4. FLONASE [Concomitant]
     Active Substance: FLUTICASONE PROPIONATE
  5. CLONAZEPAM. [Suspect]
     Active Substance: CLONAZEPAM
     Indication: SEIZURE
     Dosage: ?          QUANTITY:150 TABLET(S);OTHER FREQUENCY:5 TIMES A DAY;?
     Route: 048

REACTIONS (3)
  - Drug ineffective [None]
  - Product substitution issue [None]
  - Seizure [None]

NARRATIVE: CASE EVENT DATE: 20180326
